FAERS Safety Report 5468318-1 (Version None)
Quarter: 2007Q3

REPORT INFORMATION
  Report Type: 
  Country: None (occurrence: None)
  Receive Date: 20070926
  Receipt Date: 20070920
  Transmission Date: 20080115
  Serious: Yes (Death)
  Sender: FDA-Public Use
  Company Number: A0665015A

PATIENT
  Age: 61 Year
  Sex: Female

DRUGS (2)
  1. FLOLAN [Suspect]
     Route: 042
     Dates: start: 19980102, end: 20070708
  2. SILDENAFIL [Concomitant]
     Dosage: 25MG THREE TIMES PER DAY
     Route: 048
     Dates: start: 20070601, end: 20070101

REACTIONS (3)
  - FATIGUE [None]
  - OEDEMA [None]
  - PULMONARY HYPERTENSION [None]
